FAERS Safety Report 12903707 (Version 1)
Quarter: 2016Q4

REPORT INFORMATION
  Report Type: Spontaneous
  Country: IN (occurrence: IN)
  Receive Date: 20161102
  Receipt Date: 20161102
  Transmission Date: 20170207
  Serious: Yes (Death, Other)
  Sender: FDA-Public Use
  Company Number: IN-009507513-1609USA012844

PATIENT
  Age: 65 Year
  Sex: Female

DRUGS (7)
  1. DORIPENEM [Suspect]
     Active Substance: DORIPENEM
     Indication: ANTIBIOTIC THERAPY
     Dosage: UNK
     Dates: start: 201509
  2. METRONIDAZOLE. [Suspect]
     Active Substance: METRONIDAZOLE
     Indication: ANTIBIOTIC THERAPY
     Dosage: UNK
     Dates: start: 201509
  3. PERINORM [Concomitant]
     Dosage: UNK
     Dates: start: 201509
  4. DEXTROSE (+) SODIUM CHLORIDE [Concomitant]
     Dosage: UNK
     Route: 042
     Dates: start: 201509
  5. DAPTOMYCIN. [Suspect]
     Active Substance: DAPTOMYCIN
     Indication: ANTIBIOTIC THERAPY
     Dosage: UNK
     Route: 065
     Dates: start: 201509
  6. TIGECYCLINE. [Suspect]
     Active Substance: TIGECYCLINE
     Indication: ANTIBIOTIC THERAPY
     Dosage: UNK
     Dates: start: 201509
  7. ENOXAPARIN SODIUM. [Concomitant]
     Active Substance: ENOXAPARIN SODIUM
     Dosage: UNK
     Dates: start: 201509

REACTIONS (3)
  - Klebsiella infection [Fatal]
  - Sepsis [Fatal]
  - Drug administration error [Unknown]

NARRATIVE: CASE EVENT DATE: 2015
